FAERS Safety Report 7415050-0 (Version None)
Quarter: 2011Q2

REPORT INFORMATION
  Report Type: 
  Country: None (occurrence: None)
  Receive Date: 20110414
  Receipt Date: 20110407
  Transmission Date: 20111010
  Serious: Yes (Other)
  Sender: FDA-Public Use
  Company Number: US-SHIRE-SPV1-2011-00590

PATIENT
  Sex: Male
  Weight: 48.98 kg

DRUGS (2)
  1. LIALDA [Suspect]
     Dosage: 1.2 G, 1X/DAY:QD
     Route: 048
     Dates: start: 20070101, end: 20070101
  2. LIALDA [Suspect]
     Indication: COLITIS ULCERATIVE
     Dosage: 2.4 G, 1X/DAY:QD
     Route: 048
     Dates: start: 20110101, end: 20110405

REACTIONS (6)
  - HEADACHE [None]
  - DEHYDRATION [None]
  - ABNORMAL LOSS OF WEIGHT [None]
  - FATIGUE [None]
  - TYPE 1 DIABETES MELLITUS [None]
  - INFLUENZA LIKE ILLNESS [None]
